FAERS Safety Report 25708373 (Version 1)
Quarter: 2025Q3

REPORT INFORMATION
  Report Type: Spontaneous
  Country: US (occurrence: US)
  Receive Date: 20250821
  Receipt Date: 20250821
  Transmission Date: 20251021
  Serious: Yes (Other)
  Sender: SHILPA MEDICARE
  Company Number: US-KOANAAP-SML-US-2025-00388

PATIENT
  Age: 56 Year
  Sex: Female

DRUGS (2)
  1. AZACITIDINE [Suspect]
     Active Substance: AZACITIDINE
     Indication: Acute myeloid leukaemia
  2. VENETOCLAX [Suspect]
     Active Substance: VENETOCLAX
     Indication: Acute myeloid leukaemia

REACTIONS (6)
  - Dysphonia [Unknown]
  - Tachypnoea [Unknown]
  - Respiratory failure [Unknown]
  - Laryngitis fungal [Unknown]
  - Respiratory failure [Unknown]
  - Dyspnoea [Unknown]
